FAERS Safety Report 5610838-0 (Version None)
Quarter: 2008Q1

REPORT INFORMATION
  Report Type: 
  Country: None (occurrence: None)
  Receive Date: 20080201
  Receipt Date: 20080123
  Transmission Date: 20080703
  Serious: Yes (Other)
  Sender: FDA-Public Use
  Company Number: US-JNJFOC-20080106340

PATIENT
  Age: 49 Year
  Sex: Female
  Weight: 105.24 kg

DRUGS (7)
  1. TYLENOL W/ CODEINE [Suspect]
     Indication: GINGIVAL PAIN
     Route: 065
  2. PEG-INTRON [Suspect]
     Indication: HEPATITIS C
     Route: 065
  3. REBETOL [Suspect]
     Indication: HEPATITIS C
     Route: 048
  4. VICODIN [Suspect]
     Indication: GINGIVAL PAIN
     Route: 065
  5. IBUPROFEN [Suspect]
     Route: 065
  6. IBUPROFEN [Suspect]
     Indication: DRUG USE FOR UNKNOWN INDICATION
     Route: 065
  7. VICOPROFEN [Suspect]
     Indication: GINGIVAL PAIN
     Route: 065

REACTIONS (3)
  - HEPATIC ENZYME INCREASED [None]
  - IMPAIRED HEALING [None]
  - INFLUENZA [None]
